FAERS Safety Report 5932488-9 (Version None)
Quarter: 2008Q4

REPORT INFORMATION
  Report Type: 
  Country: None (occurrence: None)
  Receive Date: 20081028
  Receipt Date: 20081021
  Transmission Date: 20090506
  Serious: Yes (Other)
  Sender: FDA-Public Use
  Company Number: US-ASTRAZENECA-2008UW23400

PATIENT
  Age: 67 Year
  Sex: Female
  Weight: 66.2 kg

DRUGS (4)
  1. ARIMIDEX [Suspect]
     Indication: OVARIAN CANCER METASTATIC
     Route: 048
     Dates: start: 20071101, end: 20081014
  2. LYME DISEASE ANTIBIOTIC [Concomitant]
  3. ASPIRIN [Concomitant]
  4. ATIVAN [Concomitant]
     Indication: SLEEP DISORDER

REACTIONS (7)
  - ALOPECIA [None]
  - OEDEMA PERIPHERAL [None]
  - ONYCHOCLASIS [None]
  - PLATELET COUNT DECREASED [None]
  - SKIN EXFOLIATION [None]
  - URINARY TRACT INFECTION [None]
  - WHITE BLOOD CELL COUNT DECREASED [None]
